FAERS Safety Report 25939751 (Version 1)
Quarter: 2025Q4

REPORT INFORMATION
  Report Type: Spontaneous
  Country: US (occurrence: US)
  Receive Date: 20251020
  Receipt Date: 20251020
  Transmission Date: 20260118
  Serious: Yes (Other)
  Sender: AMGEN
  Company Number: US-AMGEN-USASP2025204320

PATIENT
  Age: 73 Year
  Sex: Female

DRUGS (5)
  1. PREDNISONE [Suspect]
     Active Substance: PREDNISONE
     Indication: Product used for unknown indication
     Dosage: 5 MILLIGRAM, QD
     Route: 048
  2. LEVOTHYROXINE [Concomitant]
     Active Substance: LEVOTHYROXINE
     Dosage: 100 MICROGRAM, QD
     Route: 048
  3. LISINOPRIL [Concomitant]
     Active Substance: LISINOPRIL
     Dosage: 10 MILLIGRAM, QD
     Route: 048
  4. PANTOPRAZOLE SODIUM [Concomitant]
     Active Substance: PANTOPRAZOLE SODIUM
     Dosage: 40 MILLIGRAM, QD
     Route: 048
  5. RISPERIDONE [Concomitant]
     Active Substance: RISPERIDONE
     Dosage: 0.5 MILLIGRAM
     Route: 048

REACTIONS (24)
  - Atrial fibrillation [Unknown]
  - Dementia Alzheimer^s type [Unknown]
  - Thrombocytopenia [Unknown]
  - Osteoporotic fracture [Unknown]
  - Systemic lupus erythematosus [Unknown]
  - Mitral valve incompetence [Unknown]
  - Arteriosclerosis coronary artery [Unknown]
  - Hypothyroidism [Unknown]
  - Carotid artery stenosis [Unknown]
  - Carotid artery occlusion [Unknown]
  - Osteoarthritis [Unknown]
  - Respiratory disorder [Unknown]
  - Cerumen impaction [Unknown]
  - Sunburn [Unknown]
  - Ventricular extrasystoles [Unknown]
  - Rhinitis allergic [Unknown]
  - Chronic obstructive pulmonary disease [Unknown]
  - Essential hypertension [Unknown]
  - Cardiovascular disorder [Unknown]
  - Illness [Unknown]
  - Treatment noncompliance [Unknown]
  - Physical examination abnormal [Unknown]
  - Alcohol abuse [Unknown]
  - Cardiomegaly [Unknown]

NARRATIVE: CASE EVENT DATE: 20130101
